FAERS Safety Report 4975976-4 (Version None)
Quarter: 2006Q2

REPORT INFORMATION
  Report Type: 
  Country: None (occurrence: None)
  Receive Date: 20060412
  Receipt Date: 20060404
  Transmission Date: 20061013
  Serious: Yes (Hospitalization, Other)
  Sender: FDA-Public Use
  Company Number: 2006-04-0231

PATIENT
  Age: 62 Year
  Sex: Male
  Weight: 67 kg

DRUGS (6)
  1. TEMODAL [Suspect]
     Indication: GLIOBLASTOMA
     Dosage: 120-270 MG QD* ORAL
     Route: 048
     Dates: start: 20051017, end: 20051215
  2. TEMODAL [Suspect]
     Indication: GLIOBLASTOMA
     Dosage: 120-270 MG QD* ORAL
     Route: 048
     Dates: start: 20060111, end: 20060116
  3. MILK THISTLE FRUIT [Suspect]
     Dates: start: 20060101, end: 20060118
  4. DEPAKINE CHRONO (SODIUM VALPROATE) TABLETS [Suspect]
     Indication: CONVULSION
     Dosage: 1G QD ORAL
     Route: 048
     Dates: start: 20051109, end: 20060131
  5. SOLUPRED [Suspect]
     Indication: BRAIN OEDEMA
     Dates: start: 20051017
  6. ZOPHREN          (ONDANSETRON) [Concomitant]

REACTIONS (14)
  - CONVULSION [None]
  - DERMATITIS EXFOLIATIVE [None]
  - DIABETES MELLITUS [None]
  - EOSINOPHILIA [None]
  - FACE OEDEMA [None]
  - HEPATIC STEATOSIS [None]
  - HYPERSENSITIVITY [None]
  - LYMPHOPENIA [None]
  - MACROPHAGE ACTIVATION [None]
  - OEDEMA PERIPHERAL [None]
  - PRURITUS [None]
  - PYREXIA [None]
  - RASH PUSTULAR [None]
  - TOXIC SKIN ERUPTION [None]
